FAERS Safety Report 5614996-3 (Version None)
Quarter: 2008Q1

REPORT INFORMATION
  Report Type: 
  Country: None (occurrence: None)
  Receive Date: 20080206
  Receipt Date: 20080129
  Transmission Date: 20080703
  Serious: Yes (Other)
  Sender: FDA-Public Use
  Company Number: PHBS2008ES01455

PATIENT
  Age: 76 Year
  Sex: Female

DRUGS (2)
  1. ZOMETA [Suspect]
     Indication: METASTASES TO BONE
     Dosage: 4 MG, QD
     Dates: start: 20020818, end: 20051125
  2. AREDIA [Concomitant]
     Indication: METASTASES TO BONE
     Dosage: 90 MG, QD
     Dates: start: 20020419, end: 20020716

REACTIONS (1)
  - OSTEONECROSIS [None]
